FAERS Safety Report 10348412 (Version 1)
Quarter: 2014Q3

REPORT INFORMATION
  Report Type: Spontaneous
  Country: US (occurrence: US)
  Receive Date: 20140729
  Receipt Date: 20140729
  Transmission Date: 20150326
  Serious: No
  Sender: FDA-Public Use
  Company Number: US-ASTRAZENECA-2014SE52757

PATIENT
  Age: 40 Year
  Sex: Female
  Weight: 73.5 kg

DRUGS (4)
  1. CRESTOR [Suspect]
     Active Substance: ROSUVASTATIN CALCIUM
     Indication: BLOOD CHOLESTEROL INCREASED
     Route: 048
     Dates: start: 201406
  2. BABY ASPIRIN [Concomitant]
     Active Substance: ASPIRIN
     Dates: start: 201406
  3. SYNTHROID [Concomitant]
     Active Substance: LEVOTHYROXINE SODIUM
     Dosage: 25 -UNKNOWN DAILY
     Dates: start: 201406
  4. NIACIN. [Suspect]
     Active Substance: NIACIN
     Route: 065
     Dates: end: 20140715

REACTIONS (2)
  - Dizziness [Not Recovered/Not Resolved]
  - Hyperglycaemia [Recovered/Resolved]
